FAERS Safety Report 8847704 (Version 2)
Quarter: 2012Q4

REPORT INFORMATION
  Report Type: Report from Study
  Country: GB (occurrence: GB)
  Receive Date: 20121018
  Receipt Date: 20121023
  Transmission Date: 20130627
  Serious: Yes (Death, Hospitalization)
  Sender: FDA-Public Use
  Company Number: GB-CELGENEUS-167-21880-12101466

PATIENT
  Age: 65 Year
  Sex: Male

DRUGS (2)
  1. REVLIMID [Suspect]
     Indication: MYELOMA
     Dosage: 25 Milligram
     Route: 048
     Dates: start: 20120705, end: 20121008
  2. CYCLOPHOSPHAMIDE [Suspect]
     Indication: MYELOMA
     Route: 048
     Dates: start: 20120705, end: 20121008

REACTIONS (1)
  - Purpura [Fatal]
